FAERS Safety Report 19691950 (Version 1)
Quarter: 2021Q3

REPORT INFORMATION
  Report Type: Spontaneous
  Country: DE (occurrence: DE)
  Receive Date: 20210812
  Receipt Date: 20210812
  Transmission Date: 20211014
  Serious: Yes (Hospitalization)
  Sender: FDA-Public Use
  Company Number: DE-TEVA-2021-DE-1940773

PATIENT
  Age: 44 Year
  Sex: Female
  Weight: 93 kg

DRUGS (6)
  1. AMITRIPTYLIN [Concomitant]
     Active Substance: AMITRIPTYLINE
     Dosage: 25 MILLIGRAM DAILY; 0?0?1?0
     Route: 048
  2. ACETYLSALICYLICSAURE [Interacting]
     Active Substance: ASPIRIN
     Dosage: 100 MILLIGRAM DAILY; 0?1?0?0:MEDICATION ERRORS
     Route: 048
  3. PREGABALIN. [Concomitant]
     Active Substance: PREGABALIN
     Dosage: 300 MILLIGRAM DAILY; 0?1?1?1
     Route: 048
  4. PHENPROCOUMON [Interacting]
     Active Substance: PHENPROCOUMON
     Dosage: ACCORDING TO INR, TABLETS:MEDICATION ERRORS
     Route: 048
  5. PANTOPRAZOL [Concomitant]
     Active Substance: PANTOPRAZOLE SODIUM
     Dosage: 80 MILLIGRAM DAILY; 1?0?1?0
     Route: 048
  6. IBUPROFEN. [Suspect]
     Active Substance: IBUPROFEN
     Dosage: IF NECESSARY, TABLETS:MEDICATION ERRORS
     Route: 048

REACTIONS (6)
  - Dyspnoea [Recovering/Resolving]
  - Malaise [Recovering/Resolving]
  - Labelled drug-drug interaction medication error [Unknown]
  - Decreased appetite [Recovering/Resolving]
  - Nausea [Recovering/Resolving]
  - Pallor [Recovering/Resolving]

NARRATIVE: CASE EVENT DATE: 20210523
